FAERS Safety Report 16939349 (Version 1)
Quarter: 2019Q4

REPORT INFORMATION
  Report Type: Spontaneous
  Country: US (occurrence: US)
  Receive Date: 20191021
  Receipt Date: 20191021
  Transmission Date: 20200122
  Serious: Yes (Death)
  Sender: FDA-Public Use
  Company Number: US-ACTELION-A-CH2019-196818

PATIENT
  Age: 55 Year
  Sex: Male

DRUGS (4)
  1. SILDENAFIL. [Concomitant]
     Active Substance: SILDENAFIL
     Indication: PULMONARY HYPERTENSION
  2. MILRINONE [Concomitant]
     Active Substance: MILRINONE
     Indication: PULMONARY HYPERTENSION
  3. OPSUMIT [Suspect]
     Active Substance: MACITENTAN
     Indication: PULMONARY HYPERTENSION
     Route: 048
  4. EPOPROSTENOL SODIUM. [Suspect]
     Active Substance: EPOPROSTENOL SODIUM
     Indication: PULMONARY HYPERTENSION
     Route: 042

REACTIONS (5)
  - Pulmonary oedema [Fatal]
  - Pleural effusion [Fatal]
  - Pulmonary veno-occlusive disease [Fatal]
  - Haemodynamic instability [Fatal]
  - Lymphadenopathy [Fatal]
